FAERS Safety Report 25497345 (Version 2)
Quarter: 2025Q4

REPORT INFORMATION
  Report Type: Spontaneous
  Country: EU (occurrence: EU)
  Receive Date: 20250701
  Receipt Date: 20251025
  Transmission Date: 20260118
  Serious: Yes (Life-Threatening, Hospitalization, Other)
  Sender: CELLTRION
  Company Number: EU-ROCHE-10000197839

PATIENT

DRUGS (7)
  1. BEVACIZUMAB [Suspect]
     Active Substance: BEVACIZUMAB
     Indication: Ovarian cancer recurrent
     Dosage: 1035 MG (DRUG LAST ADMINISTERED: 12-DEC-2024)
     Route: 042
     Dates: start: 20200824
  2. ATEZOLIZUMAB [Suspect]
     Active Substance: ATEZOLIZUMAB
     Indication: Ovarian cancer recurrent
     Dosage: 1200 MG (DATE OF LAST ADMINISTRATION: 02-JAN-2025)
     Route: 042
     Dates: start: 20200824
  3. CARBOPLATIN [Suspect]
     Active Substance: CARBOPLATIN
     Indication: Ovarian cancer recurrent
     Dosage: 5 AUC (DATE OF LAST ADMINISTRATION: 01-FEB-2021)
     Route: 042
     Dates: start: 20200824
  4. PACLITAXEL [Suspect]
     Active Substance: PACLITAXEL
     Indication: Ovarian cancer recurrent
     Dosage: 175 MG/M2 (DATE OF LAST ADMINISTRATION: 01-FEB-2021)
     Route: 042
     Dates: start: 20200824
  5. LEVOTHYROXINE [Concomitant]
     Active Substance: LEVOTHYROXINE
     Indication: Hypothyroidism
     Dosage: 100 MG
     Route: 048
  6. TOVIAZ [Concomitant]
     Active Substance: FESOTERODINE FUMARATE
     Dosage: 4 MG
     Route: 048
  7. RAMIPRIL [Concomitant]
     Active Substance: RAMIPRIL
     Indication: Hypertension
     Dosage: 1.25 MG
     Route: 048

REACTIONS (2)
  - Hepatic cytolysis [Recovered/Resolved]
  - Overdose [Unknown]

NARRATIVE: CASE EVENT DATE: 20250122
